FAERS Safety Report 8937149 (Version 1)
Quarter: 2012Q4

REPORT INFORMATION
  Report Type: Spontaneous
  Country: US (occurrence: None)
  Receive Date: 20121128
  Receipt Date: 20121128
  Transmission Date: 20130627
  Serious: Yes (Hospitalization)
  Sender: FDA-Public Use
  Company Number: None

PATIENT
  Age: 64 Year
  Sex: Female
  Weight: 117.7 kg

DRUGS (15)
  1. COLCHICINE [Suspect]
     Indication: GOUT
     Dosage: 0.6mg BID po
     Route: 048
  2. BYSTOLIC [Concomitant]
  3. ALLOPURINOL [Concomitant]
  4. CLONIDINE [Concomitant]
  5. DIOVAN [Concomitant]
  6. DILTIAZEM/HCTZ [Concomitant]
  7. KLOR-CON [Concomitant]
  8. OMEPRAZOLE [Concomitant]
  9. LANTUS [Concomitant]
  10. ASA [Concomitant]
  11. FISH OIL [Concomitant]
  12. AGGRENOX [Concomitant]
  13. BUMEX [Concomitant]
  14. HUMALOG [Concomitant]
  15. VOLTAREN [Concomitant]

REACTIONS (7)
  - Fall [None]
  - Hypotension [None]
  - Asthenia [None]
  - Renal failure acute [None]
  - Neuropathy peripheral [None]
  - Rhabdomyolysis [None]
  - Polymyositis [None]
